FAERS Safety Report 23073615 (Version 1)
Quarter: 2023Q4

REPORT INFORMATION
  Report Type: Spontaneous
  Country: US (occurrence: US)
  Receive Date: 20231017
  Receipt Date: 20231017
  Transmission Date: 20240109
  Serious: Yes (Hospitalization, Other)
  Sender: FDA-Public Use
  Company Number: US-ROCHE-2059334

PATIENT
  Sex: Male

DRUGS (2)
  1. VALGANCICLOVIR [Suspect]
     Active Substance: VALGANCICLOVIR
     Indication: Lung transplant
     Dosage: 1 TABLET BID
     Route: 048
  2. MYCOPHENOLATE MOFETIL [Suspect]
     Active Substance: MYCOPHENOLATE MOFETIL
     Indication: Lung transplant
     Dosage: 250 MG CAPSULE
     Route: 048

REACTIONS (6)
  - Pleural effusion [Not Recovered/Not Resolved]
  - Lung disorder [Unknown]
  - Off label use [Unknown]
  - COVID-19 pneumonia [Unknown]
  - Pulmonary fibrosis [Unknown]
  - Neoplasm malignant [Unknown]
